FAERS Safety Report 7048101-6 (Version None)
Quarter: 2010Q4

REPORT INFORMATION
  Report Type: 
  Country: None (occurrence: None)
  Receive Date: 20101015
  Receipt Date: 20101006
  Transmission Date: 20110411
  Serious: Yes (Hospitalization)
  Sender: FDA-Public Use
  Company Number: RU-WYE-H17581210

PATIENT
  Sex: Male
  Weight: 73 kg

DRUGS (6)
  1. TEMSIROLIMUS [Suspect]
     Indication: RENAL CANCER
     Route: 042
     Dates: start: 20100611, end: 20100913
  2. TEMSIROLIMUS [Suspect]
     Dosage: DOSE NOT SPECIFIED
     Route: 042
  3. METOPROLOL [Concomitant]
     Indication: HYPERTENSION
     Dosage: UNKNOWN
     Route: 065
  4. ENALAPRIL MALEATE [Concomitant]
     Indication: HYPERTENSION
     Dosage: UNKNOWN
     Route: 065
  5. BEVACIZUMAB [Suspect]
     Indication: RENAL CANCER
     Route: 042
     Dates: start: 20100707, end: 20100901
  6. BEVACIZUMAB [Suspect]
     Dosage: NOT PROVIDED
     Route: 042

REACTIONS (2)
  - GINGIVAL ULCERATION [None]
  - OSTEOMYELITIS [None]
